FAERS Safety Report 8797833 (Version 2)
Quarter: 2012Q4

REPORT INFORMATION
  Report Type: Spontaneous
  Country: KR (occurrence: None)
  Receive Date: 20120913
  Receipt Date: 20120924
  Transmission Date: 20130627
  Serious: Yes (Hospitalization)
  Sender: FDA-Public Use
  Company Number: 2012HGS-003921

PATIENT
  Age: 27 Year
  Sex: Female
  Weight: 47 kg

DRUGS (3)
  1. BELIMUMAB [Suspect]
     Indication: SYSTEMIC LUPUS ERYTHEMATOSUS
     Route: 042
     Dates: start: 20120126
  2. TALNIFLUMATE [Concomitant]
  3. CIMETIDINE [Concomitant]

REACTIONS (7)
  - Herpes zoster [None]
  - Red blood cell count decreased [None]
  - Blood creatinine increased [None]
  - Creatinine renal clearance decreased [None]
  - Protein total decreased [None]
  - Blood albumin decreased [None]
  - Urine protein/creatinine ratio increased [None]
